FAERS Safety Report 18327500 (Version 5)
Quarter: 2021Q3

REPORT INFORMATION
  Report Type: Spontaneous
  Country: CA (occurrence: CA)
  Receive Date: 20200930
  Receipt Date: 20210707
  Transmission Date: 20211014
  Serious: Yes (Other)
  Sender: FDA-Public Use
  Company Number: CA-CELLTRION INC.-2020CA028236

PATIENT

DRUGS (10)
  1. MEZAVANT [Concomitant]
     Active Substance: MESALAMINE
     Dosage: 1 DF (DOSAGE INFORMATION NOT AVAILABLE)
     Route: 065
  2. AZATHIOPRINE. [Concomitant]
     Active Substance: AZATHIOPRINE
     Dosage: UNK
     Route: 065
  3. IMURAN [Concomitant]
     Active Substance: AZATHIOPRINE
     Indication: COLITIS ULCERATIVE
     Dosage: 1 DF (DOSAGE INFORMATION NOT AVAILABLE)
  4. INFLECTRA [Suspect]
     Active Substance: INFLIXIMAB-DYYB
     Indication: CROHN^S DISEASE
     Dosage: 400 MG, AT 0,2,6 WEEKS THEN EVERY 8 WEEKS
     Route: 042
     Dates: start: 20200810
  5. INFLECTRA [Suspect]
     Active Substance: INFLIXIMAB-DYYB
     Dosage: 400 MG, AT 0,2,6 WEEKS THEN EVERY 8 WEEKS
     Route: 042
     Dates: start: 20200921
  6. INFLECTRA [Suspect]
     Active Substance: INFLIXIMAB-DYYB
     Dosage: 400 MG, AT 0,2,6 WEEKS THEN EVERY 8 WEEKS
     Route: 042
     Dates: start: 20210621
  7. PREDNISONE. [Concomitant]
     Active Substance: PREDNISONE
     Dosage: 10 MG, DAILY, END OF TAPERING
     Route: 065
  8. INFLECTRA [Suspect]
     Active Substance: INFLIXIMAB-DYYB
     Dosage: 400 MG, AT 0,2,6 WEEKS THEN EVERY 8 WEEKS
     Route: 042
     Dates: start: 20210104
  9. INFLECTRA [Suspect]
     Active Substance: INFLIXIMAB-DYYB
     Indication: COLITIS ULCERATIVE
     Dosage: 400 MG, AT 0,2,6 WEEKS THEN EVERY 8 WEEKS
     Route: 042
     Dates: start: 20200824
  10. INFLECTRA [Suspect]
     Active Substance: INFLIXIMAB-DYYB
     Dosage: 400 MG, AT 0,2,6 WEEKS THEN EVERY 8 WEEKS
     Route: 042
     Dates: start: 20210426

REACTIONS (8)
  - Pain [Unknown]
  - Condition aggravated [Unknown]
  - Body temperature decreased [Unknown]
  - Off label use [Unknown]
  - Intentional product use issue [Unknown]
  - Heart rate irregular [Unknown]
  - Rectal haemorrhage [Unknown]
  - Blood pressure fluctuation [Unknown]

NARRATIVE: CASE EVENT DATE: 20210621
